FAERS Safety Report 18079443 (Version 1)
Quarter: 2020Q3

REPORT INFORMATION
  Report Type: Spontaneous
  Country: US (occurrence: US)
  Receive Date: 20200728
  Receipt Date: 20200728
  Transmission Date: 20201103
  Serious: Yes (Other)
  Sender: FDA-Public Use
  Company Number: US-PFIZER INC-2019227607

PATIENT
  Age: 31 Year
  Sex: Male
  Weight: 99.79 kg

DRUGS (1)
  1. GENOTROPIN MQ [Suspect]
     Active Substance: SOMATROPIN
     Indication: HYPOPITUITARISM
     Dosage: 1 MG, DAILY
     Dates: end: 2020

REACTIONS (3)
  - Product prescribing error [Unknown]
  - Suicidal ideation [Unknown]
  - Hallucination, auditory [Unknown]
